FAERS Safety Report 5014055-7 (Version None)
Quarter: 2006Q2

REPORT INFORMATION
  Report Type: 
  Country: None (occurrence: None)
  Receive Date: 20060525
  Receipt Date: 20060509
  Transmission Date: 20061013
  Serious: Yes (Hospitalization)
  Sender: FDA-Public Use
  Company Number: ES200605002507

PATIENT
  Age: 79 Year
  Sex: Female

DRUGS (2)
  1. FORTEO [Suspect]
     Indication: OSTEOPOROSIS
     Dosage: 20 U, DAILY (1/D), SUBCUTANEOUS
     Route: 058
     Dates: start: 20060306
  2. FORTEO [Concomitant]

REACTIONS (4)
  - ASTHMATIC CRISIS [None]
  - CARDIAC FAILURE [None]
  - NASOPHARYNGITIS [None]
  - THERAPY NON-RESPONDER [None]
